FAERS Safety Report 11463587 (Version 1)
Quarter: 2015Q3

REPORT INFORMATION
  Report Type: Spontaneous
  Country: US (occurrence: US)
  Receive Date: 20150831
  Receipt Date: 20150831
  Transmission Date: 20151125
  Serious: Yes (Hospitalization, Other)
  Sender: FDA-Public Use
  Company Number: US-ELI_LILLY_AND_COMPANY-US201103001472

PATIENT
  Age: 87 Year
  Sex: Female
  Weight: 63.49 kg

DRUGS (12)
  1. METOPROLOL [Concomitant]
     Active Substance: METOPROLOL
     Dosage: 25 MG, QD
  2. CYMBALTA [Suspect]
     Active Substance: DULOXETINE HYDROCHLORIDE
     Indication: DEPRESSION
     Dosage: 30 MG, UNK
  3. METOPROLOL [Concomitant]
     Active Substance: METOPROLOL
     Dosage: 25 MG, BID
  4. VITAMIN D [Concomitant]
     Active Substance: CHOLECALCIFEROL
  5. ECOTRIN [Concomitant]
     Active Substance: ASPIRIN
  6. MULTIPLE VITAMINS [Concomitant]
     Active Substance: VITAMINS
  7. CYMBALTA [Suspect]
     Active Substance: DULOXETINE HYDROCHLORIDE
     Dosage: 30 MG, UNK
  8. PRILOSEC [Concomitant]
     Active Substance: OMEPRAZOLE MAGNESIUM
  9. CYMBALTA [Suspect]
     Active Substance: DULOXETINE HYDROCHLORIDE
     Dosage: 60 MG, UNK
     Dates: start: 20110202
  10. TYLENOL                                 /SCH/ [Concomitant]
  11. CITRACAL [Concomitant]
     Active Substance: CALCIUM CITRATE
  12. VITAMIN D [Concomitant]
     Active Substance: CHOLECALCIFEROL
     Dosage: 50000 UL, WEEKLY (1/W)

REACTIONS (9)
  - Cognitive disorder [Recovered/Resolved]
  - Drug ineffective [Unknown]
  - Blood pressure fluctuation [Unknown]
  - Blood pressure increased [Unknown]
  - Fall [Recovered/Resolved]
  - Humerus fracture [Unknown]
  - Syncope [Recovered/Resolved]
  - Intentional product misuse [Unknown]
  - Orthostatic hypotension [Unknown]
